FAERS Safety Report 24827740 (Version 3)
Quarter: 2025Q1

REPORT INFORMATION
  Report Type: Spontaneous
  Country: US (occurrence: US)
  Receive Date: 20250109
  Receipt Date: 20250211
  Transmission Date: 20250409
  Serious: No
  Sender: BRISTOL-MYERS SQUIBB COMPANY
  Company Number: US-BRISTOL-MYERS SQUIBB COMPANY-2025-002966

PATIENT
  Age: 73 Year
  Sex: Male

DRUGS (2)
  1. LENALIDOMIDE [Suspect]
     Active Substance: LENALIDOMIDE
     Indication: Plasma cell myeloma
     Route: 048
  2. LENALIDOMIDE [Suspect]
     Active Substance: LENALIDOMIDE
     Dosage: FREQ: 5 MG PO X 7 DAYS ON AND 7 DAYS OFF?TAKE 1 CAPSULE BY MOUTH ONCE DAILY FOR 1 WEEK ON, THEN 1 WE
     Route: 048

REACTIONS (3)
  - White blood cell count decreased [Recovered/Resolved]
  - Off label use [Unknown]
  - Decreased appetite [Recovering/Resolving]
